FAERS Safety Report 9973355 (Version 2)
Quarter: 2014Q3

REPORT INFORMATION
  Report Type: Report from Study
  Country: US (occurrence: US)
  Receive Date: 20140306
  Receipt Date: 20140808
  Transmission Date: 20150326
  Serious: Yes (Other)
  Sender: FDA-Public Use
  Company Number: US-JNJFOC-20140218144

PATIENT
  Sex: Female
  Weight: 95.26 kg

DRUGS (25)
  1. REMICADE [Suspect]
     Active Substance: INFLIXIMAB
     Indication: COELIAC DISEASE
     Dosage: IN SEP OR OCT 2012
     Route: 042
     Dates: start: 2012, end: 201312
  2. BONIVA [Suspect]
     Active Substance: IBANDRONATE SODIUM
     Indication: OSTEOPOROSIS
     Route: 048
     Dates: start: 2013, end: 2013
  3. AZATHIOPRINE. [Concomitant]
     Active Substance: AZATHIOPRINE
     Dosage: AS NECESSARY
     Route: 048
     Dates: start: 201310
  4. VITAMIN D3 [Concomitant]
     Active Substance: CHOLECALCIFEROL
     Indication: HYPOVITAMINOSIS
     Route: 048
     Dates: start: 201201
  5. HYDROCORTISONE. [Concomitant]
     Active Substance: HYDROCORTISONE
     Indication: SECONDARY ADRENOCORTICAL INSUFFICIENCY
     Dosage: 10MG IN MORNING AND 5MG AT DINNER
     Route: 065
     Dates: start: 2012
  6. CALTRATE [Concomitant]
     Active Substance: CALCIUM CARBONATE
     Indication: OSTEOPOROSIS
     Dosage: FOR YEARS
     Route: 048
     Dates: end: 2013
  7. SOLU-CORTEF [Concomitant]
     Active Substance: HYDROCORTISONE SODIUM SUCCINATE
     Indication: SECONDARY ADRENOCORTICAL INSUFFICIENCY
     Dosage: AS NECESSARY
     Route: 058
     Dates: start: 2012
  8. FERROUS SULFATE [Concomitant]
     Active Substance: FERROUS SULFATE\FERROUS SULFATE, DRIED
     Indication: ANAEMIA
     Route: 048
     Dates: start: 201201
  9. REMICADE [Suspect]
     Active Substance: INFLIXIMAB
     Indication: COELIAC DISEASE
     Route: 042
     Dates: start: 201401
  10. POTASSIUM CHLORIDE. [Concomitant]
     Active Substance: POTASSIUM CHLORIDE
     Route: 048
     Dates: start: 2011
  11. FUROSEMIDE. [Concomitant]
     Active Substance: FUROSEMIDE
     Indication: DIURETIC THERAPY
     Route: 065
     Dates: start: 201104
  12. CALTRATE [Concomitant]
     Active Substance: CALCIUM CARBONATE
     Indication: OSTEOPENIA
     Dosage: FOR YEARS
     Route: 048
     Dates: end: 2013
  13. CITRACAL [Concomitant]
     Active Substance: CALCIUM CITRATE
     Indication: OSTEOPENIA
     Route: 048
     Dates: start: 2013
  14. CITRACAL [Concomitant]
     Active Substance: CALCIUM CITRATE
     Indication: OSTEOPOROSIS
     Route: 048
     Dates: start: 2013
  15. METFORMIN [Concomitant]
     Active Substance: METFORMIN HYDROCHLORIDE
     Indication: DIABETES MELLITUS
     Route: 048
     Dates: start: 2012
  16. FOLIC ACID. [Concomitant]
     Active Substance: FOLIC ACID
     Indication: BLOOD HOMOCYSTEINE INCREASED
     Route: 048
     Dates: start: 201201
  17. SERTRALINE [Concomitant]
     Active Substance: SERTRALINE HYDROCHLORIDE
     Indication: DEPRESSION
     Route: 048
     Dates: start: 2012
  18. SYNTHROID [Concomitant]
     Active Substance: LEVOTHYROXINE SODIUM
     Indication: HYPOTHYROIDISM
     Dosage: SINCE 1970^S
     Route: 048
  19. WARFARIN [Concomitant]
     Active Substance: WARFARIN
     Indication: FACTOR V LEIDEN MUTATION
     Route: 048
     Dates: start: 201104
  20. TRAMADOL [Concomitant]
     Active Substance: TRAMADOL
     Indication: PAIN
     Dosage: EVERY 4 TO 6 HOURS AS NEEDED
     Route: 048
     Dates: start: 2009
  21. PSEUDOEPHEDRINE [Concomitant]
     Active Substance: PSEUDOEPHEDRINE
     Route: 048
  22. REMICADE [Suspect]
     Active Substance: INFLIXIMAB
     Indication: COLITIS MICROSCOPIC
     Route: 042
     Dates: start: 201401
  23. REMICADE [Suspect]
     Active Substance: INFLIXIMAB
     Indication: COLITIS MICROSCOPIC
     Dosage: IN SEP OR OCT 2012
     Route: 042
     Dates: start: 2012, end: 201312
  24. ATENOLOL. [Concomitant]
     Active Substance: ATENOLOL
     Indication: HYPERTENSION
     Route: 048
     Dates: start: 2012
  25. ALLEGRA [Concomitant]
     Active Substance: FEXOFENADINE HYDROCHLORIDE
     Indication: MULTIPLE ALLERGIES
     Dosage: SINCE 6 OR 7 YEARS
     Route: 048

REACTIONS (6)
  - Drug effect decreased [Unknown]
  - Pruritus [Not Recovered/Not Resolved]
  - Systemic lupus erythematosus rash [Not Recovered/Not Resolved]
  - Osteoporosis [Not Recovered/Not Resolved]
  - Diarrhoea [Not Recovered/Not Resolved]
  - Off label use [Unknown]

NARRATIVE: CASE EVENT DATE: 2012
